FAERS Safety Report 8819831 (Version 1)
Quarter: 2012Q4

REPORT INFORMATION
  Report Type: 
  Country: US (occurrence: US)
  Receive Date: 20121001
  Receipt Date: 20121001
  Transmission Date: 20130627
  Serious: Yes (Other)
  Sender: FDA-Public Use
  Company Number: US-PFIZER INC-2012241573

PATIENT
  Age: 59 Year
  Sex: Female
  Weight: 79.37 kg

DRUGS (6)
  1. LYRICA [Suspect]
     Indication: FIBROMYALGIA
     Dosage: 350 mg, UNK
     Dates: start: 201109
  2. LYRICA [Suspect]
     Dosage: 150 mg, UNK
  3. LYRICA [Suspect]
     Dosage: 250 mg, UNK
  4. HYDROCODONE [Concomitant]
     Indication: PAIN
     Dosage: UNK
  5. NEXIUM [Concomitant]
     Indication: GASTRIC DISORDER
     Dosage: UNK
  6. GLUCOSAMINE [Concomitant]
     Dosage: UNK

REACTIONS (5)
  - Fibromyalgia [Unknown]
  - Surgery [Unknown]
  - Somnolence [Unknown]
  - Feeling drunk [Recovered/Resolved]
  - Malaise [Unknown]
